FAERS Safety Report 8316411-8 (Version None)
Quarter: 2012Q2

REPORT INFORMATION
  Report Type: 
  Country: None (occurrence: None)
  Receive Date: 20120425
  Receipt Date: 20120425
  Transmission Date: 20120825
  Serious: Yes (Life-Threatening, Other)
  Sender: FDA-Public Use
  Company Number: None

PATIENT
  Sex: Female
  Weight: 70.7611 kg

DRUGS (1)
  1. THYROID TAB [Suspect]
     Indication: HYPOTHYROIDISM
     Dosage: 1 TAB DAILY
     Dates: start: 20120405, end: 20120406

REACTIONS (9)
  - HEADACHE [None]
  - FEELING HOT [None]
  - DISORIENTATION [None]
  - CHEST PAIN [None]
  - HEART RATE INCREASED [None]
  - ABDOMINAL PAIN UPPER [None]
  - VOMITING [None]
  - DIZZINESS [None]
  - DIARRHOEA [None]
